FAERS Safety Report 16266182 (Version 5)
Quarter: 2021Q1

REPORT INFORMATION
  Report Type: Spontaneous
  Country: US (occurrence: US)
  Receive Date: 20190502
  Receipt Date: 20210222
  Transmission Date: 20210419
  Serious: Yes (Other)
  Sender: FDA-Public Use
  Company Number: US-GILEAD-2019-0405370

PATIENT
  Age: 55 Year
  Sex: Male
  Weight: 90.7 kg

DRUGS (70)
  1. ASPIRIN 81 [Concomitant]
     Active Substance: ASPIRIN
  2. LEVSIN [Concomitant]
     Active Substance: HYOSCYAMINE SULFATE
  3. ISONIAZID. [Concomitant]
     Active Substance: ISONIAZID
  4. SULFAMETHOXAZOLE AND TRIMETHOPRIM [Concomitant]
     Active Substance: SULFAMETHOXAZOLE\TRIMETHOPRIM
  5. LEVOFLOXACIN. [Concomitant]
     Active Substance: LEVOFLOXACIN
  6. BENZONATATE. [Concomitant]
     Active Substance: BENZONATATE
  7. LEXAPRO [Concomitant]
     Active Substance: ESCITALOPRAM OXALATE
  8. TRUVADA [Suspect]
     Active Substance: EMTRICITABINE\TENOFOVIR DISOPROXIL FUMARATE
     Indication: HIV INFECTION
     Dosage: 1 DOSAGE FORM, QD
     Route: 048
     Dates: start: 200602, end: 200802
  9. CARAFATE [Concomitant]
     Active Substance: SUCRALFATE
  10. GLIPIZIDE. [Concomitant]
     Active Substance: GLIPIZIDE
  11. GLYBURIDE. [Concomitant]
     Active Substance: GLYBURIDE
  12. FLUTICASONE PROPIONATE. [Concomitant]
     Active Substance: FLUTICASONE PROPIONATE
  13. FLUCONAZOLE. [Concomitant]
     Active Substance: FLUCONAZOLE
  14. BACTRIM [Concomitant]
     Active Substance: SULFAMETHOXAZOLE\TRIMETHOPRIM
  15. EPIVIR [Concomitant]
     Active Substance: LAMIVUDINE
  16. ATRIPLA [Suspect]
     Active Substance: EFAVIRENZ\EMTRICITABINE\TENOFOVIR DISOPROXIL FUMARATE
     Indication: HIV INFECTION
     Dosage: UNK
     Route: 048
     Dates: start: 200803, end: 201212
  17. ATRIPLA [Suspect]
     Active Substance: EFAVIRENZ\EMTRICITABINE\TENOFOVIR DISOPROXIL FUMARATE
     Dosage: UNK
     Route: 048
     Dates: start: 200607, end: 201012
  18. KETOCONAZOLE. [Concomitant]
     Active Substance: KETOCONAZOLE
  19. LANTUS [Concomitant]
     Active Substance: INSULIN GLARGINE
  20. PRENATAL PLUS [Concomitant]
     Active Substance: .ALPHA.-TOCOPHEROL ACETATE, DL-\.BETA.-CAROTENE\ASCORBIC ACID\CALCIUM CARBONATE\CHOLECALCIFEROL\CUPRIC OXIDE\CYANOCOBALAMIN\FERROUS FUMARATE\FOLIC ACID\NIACINAMIDE\PYRIDOXINE HYDROCHLORIDE\RIBOFLAVIN\THIAMINE MONONITRATE\VITAMIN A ACETATE\ZINC OXIDE
  21. DICYCLOMINE HCL [Concomitant]
     Active Substance: DICYCLOMINE HYDROCHLORIDE
  22. VENTOLIN HFA [Concomitant]
     Active Substance: ALBUTEROL SULFATE
  23. PREPLUS B12 [Concomitant]
  24. COREG [Concomitant]
     Active Substance: CARVEDILOL
  25. ALEVE [Concomitant]
     Active Substance: NAPROXEN SODIUM
  26. CRIXIVAN [Concomitant]
     Active Substance: INDINAVIR SULFATE
  27. CALCIUM 600 + D [Concomitant]
     Active Substance: CALCIUM\VITAMIN D
  28. NEXIUM I.V. [Concomitant]
     Active Substance: ESOMEPRAZOLE SODIUM
  29. TRICOR [ADENOSINE] [Concomitant]
     Active Substance: ADENOSINE
  30. ATORVASTATIN [Concomitant]
     Active Substance: ATORVASTATIN
  31. HIBICLENS [Concomitant]
     Active Substance: CHLORHEXIDINE GLUCONATE
  32. AMOXICILLIN. [Concomitant]
     Active Substance: AMOXICILLIN
  33. KALETRA [Concomitant]
     Active Substance: LOPINAVIR\RITONAVIR
  34. SUSTIVA [Concomitant]
     Active Substance: EFAVIRENZ
  35. TRUVADA [Suspect]
     Active Substance: EMTRICITABINE\TENOFOVIR DISOPROXIL FUMARATE
     Dosage: 1 DOSAGE FORM, QD
     Route: 048
     Dates: start: 20101027, end: 20161027
  36. VITAMIN B6 [Concomitant]
     Active Substance: PYRIDOXINE HYDROCHLORIDE
  37. ONGLYZA [Concomitant]
     Active Substance: SAXAGLIPTIN HYDROCHLORIDE
  38. CLARITIN ALLERGY DECONGESTANT [Concomitant]
  39. ESCITALOPRAM OXALATE. [Concomitant]
     Active Substance: ESCITALOPRAM OXALATE
  40. MELATONIN [Concomitant]
     Active Substance: MELATONIN
  41. TYLENOL [Concomitant]
     Active Substance: ACETAMINOPHEN
  42. INSULIN [Concomitant]
     Active Substance: INSULIN NOS
  43. NORVIR [Concomitant]
     Active Substance: RITONAVIR
  44. GENVOYA [Concomitant]
     Active Substance: COBICISTAT\ELVITEGRAVIR\EMTRICITABINE\TENOFOVIR ALAFENAMIDE FUMARATE
     Dosage: UNK
     Route: 048
     Dates: start: 20161027, end: 20181129
  45. BIKTARVY [Concomitant]
     Active Substance: BICTEGRAVIR SODIUM\EMTRICITABINE\TENOFOVIR ALAFENAMIDE FUMARATE
     Dosage: UNK
     Dates: start: 20181129
  46. METOCLOPRAMIDE. [Concomitant]
     Active Substance: METOCLOPRAMIDE
  47. ONDANSETRON [Concomitant]
     Active Substance: ONDANSETRON
  48. PANTOPRAZOLE SODIUM. [Concomitant]
     Active Substance: PANTOPRAZOLE SODIUM
  49. MELOXICAM. [Concomitant]
     Active Substance: MELOXICAM
  50. HYDROCHLOROTHIAZIDE. [Concomitant]
     Active Substance: HYDROCHLOROTHIAZIDE
  51. MUCINEX [Concomitant]
     Active Substance: GUAIFENESIN
  52. NYSTATIN. [Concomitant]
     Active Substance: NYSTATIN
  53. CLINDAMYCIN. [Concomitant]
     Active Substance: CLINDAMYCIN
  54. HUMALOG JUNIOR KWIKPEN [Concomitant]
     Active Substance: INSULIN LISPRO
  55. HYDROCODONE/ACETAMINOPHEN [Concomitant]
     Active Substance: ACETAMINOPHEN\HYDROCODONE
  56. PROMETHAZINE [Concomitant]
     Active Substance: PROMETHAZINE HYDROCHLORIDE
  57. AZITHROMYCIN ANHYDROUS. [Concomitant]
     Active Substance: AZITHROMYCIN ANHYDROUS
  58. AMLODIPINE BESYLATE. [Concomitant]
     Active Substance: AMLODIPINE BESYLATE
  59. TRUVADA [Suspect]
     Active Substance: EMTRICITABINE\TENOFOVIR DISOPROXIL FUMARATE
     Dosage: 1 DOSAGE FORM, QD
     Route: 048
     Dates: start: 201012, end: 201512
  60. FENOFIBRATE. [Concomitant]
     Active Substance: FENOFIBRATE
  61. ISENTRESS [Concomitant]
     Active Substance: RALTEGRAVIR POTASSIUM
  62. LISINOPRIL. [Concomitant]
     Active Substance: LISINOPRIL
  63. FISH OIL [Concomitant]
     Active Substance: FISH OIL
  64. SERTRALINE [Concomitant]
     Active Substance: SERTRALINE HYDROCHLORIDE
  65. ACYCLOVIR ABBOTT VIAL [Concomitant]
  66. CARVEDILOL. [Concomitant]
     Active Substance: CARVEDILOL
  67. IBUPROFEN. [Concomitant]
     Active Substance: IBUPROFEN
  68. VIAGRA [Concomitant]
     Active Substance: SILDENAFIL CITRATE
  69. INVIRASE [Concomitant]
     Active Substance: SAQUINAVIR MESYLATE
  70. HYDROXYZINE [Concomitant]
     Active Substance: HYDROXYZINE HYDROCHLORIDE

REACTIONS (11)
  - Renal failure [Not Recovered/Not Resolved]
  - Anhedonia [Unknown]
  - Loss of personal independence in daily activities [Unknown]
  - Osteonecrosis [Not Recovered/Not Resolved]
  - Lipohypertrophy [Not Recovered/Not Resolved]
  - Bone loss [Unknown]
  - Anxiety [Not Recovered/Not Resolved]
  - Emotional distress [Not Recovered/Not Resolved]
  - Bone density decreased [Unknown]
  - Economic problem [Unknown]
  - Pain in extremity [Unknown]

NARRATIVE: CASE EVENT DATE: 2006
